FAERS Safety Report 10332820 (Version 1)
Quarter: 2014Q3

REPORT INFORMATION
  Report Type: Spontaneous
  Country: NZ (occurrence: NZ)
  Receive Date: 20140722
  Receipt Date: 20140722
  Transmission Date: 20150326
  Serious: Yes (Other)
  Sender: FDA-Public Use
  Company Number: NZ-ELI_LILLY_AND_COMPANY-NZ201407005690

PATIENT
  Sex: Female
  Weight: 100 kg

DRUGS (2)
  1. ZYPREXA RELPREVV [Suspect]
     Active Substance: OLANZAPINE PAMOATE
     Indication: PRODUCT USED FOR UNKNOWN INDICATION
     Dosage: 300 MG, OTHER
     Route: 065
  2. ZYPREXA RELPREVV [Suspect]
     Active Substance: OLANZAPINE PAMOATE
     Dosage: 300 MG, MONTHLY (1/M)
     Route: 065
     Dates: start: 20140609

REACTIONS (3)
  - Inappropriate schedule of drug administration [Unknown]
  - Psychiatric decompensation [Recovered/Resolved]
  - Weight increased [Unknown]
